FAERS Safety Report 22304865 (Version 5)
Quarter: 2023Q4

REPORT INFORMATION
  Report Type: Report from Study
  Country: KR (occurrence: KR)
  Receive Date: 20230510
  Receipt Date: 20231201
  Transmission Date: 20240110
  Serious: Yes (Death, Life-Threatening, Hospitalization)
  Sender: FDA-Public Use
  Company Number: KR-PFIZER INC-PV202300080390

PATIENT
  Age: 78 Year
  Sex: Male
  Weight: 60.4 kg

DRUGS (7)
  1. TALAZOPARIB [Suspect]
     Active Substance: TALAZOPARIB
     Indication: Prostate cancer
     Dosage: UNK, ONCE DAILY (QD)
     Route: 048
     Dates: start: 20230110, end: 20230516
  2. XTANDI [Suspect]
     Active Substance: ENZALUTAMIDE
     Indication: Prostate cancer
     Dosage: 160 MG, ONCE DAILY (QD)
     Route: 048
     Dates: start: 20230110, end: 20230512
  3. MISARTAN TWIN [Concomitant]
     Indication: Hypertension
     Dosage: 1 TAB, 1X/DAY
     Route: 048
     Dates: start: 20200101, end: 20230502
  4. AMDIPINE [Concomitant]
     Indication: Hypertension
     Dosage: 1 TAB, 1X/DAY
     Route: 048
     Dates: start: 20200101, end: 20230502
  5. INDACATEROL [Concomitant]
     Active Substance: INDACATEROL
     Indication: Chronic obstructive pulmonary disease
     Dosage: 150 UG, 1X/DAY
     Route: 055
     Dates: start: 20230223, end: 20230512
  6. FYBRO [Concomitant]
     Indication: Idiopathic pulmonary fibrosis
     Dosage: 400 MG, 3X/DAY
     Route: 048
     Dates: start: 20230323, end: 20230502
  7. TRESTAN [CARNITINE HYDROCHLORIDE;CYANOCOBALAMIN;CYPROHEPTADINE OROTATE [Concomitant]
     Indication: Decreased appetite
     Dosage: 1 CAP, 2X/DAY
     Route: 048
     Dates: start: 20230420, end: 20230502

REACTIONS (1)
  - Idiopathic pulmonary fibrosis [Fatal]

NARRATIVE: CASE EVENT DATE: 20230429
